FAERS Safety Report 9509200 (Version 1)
Quarter: 2013Q3

REPORT INFORMATION
  Report Type: Spontaneous
  Country: US (occurrence: US)
  Receive Date: 20130909
  Receipt Date: 20130909
  Transmission Date: 20140515
  Serious: No
  Sender: FDA-Public Use
  Company Number: US-BRISTOL-MYERS SQUIBB COMPANY-19047752

PATIENT
  Age: 55 Year
  Sex: Female

DRUGS (2)
  1. ABILIFY [Suspect]
     Indication: BIPOLAR DISORDER
     Dosage: ABILIFY 1 MG; DOSE REDUCED AND WITHDRAWN
  2. ABILIFY [Suspect]
     Indication: DEPRESSION
     Dosage: ABILIFY 1 MG; DOSE REDUCED AND WITHDRAWN

REACTIONS (2)
  - Akathisia [Unknown]
  - Asthenopia [Unknown]
